FAERS Safety Report 8125478-1 (Version None)
Quarter: 2012Q1

REPORT INFORMATION
  Report Type: 
  Country: None (occurrence: None)
  Receive Date: 20120209
  Receipt Date: 20120203
  Transmission Date: 20120608
  Serious: Yes (Other)
  Sender: FDA-Public Use
  Company Number: US-PFIZER INC-2011290700

PATIENT
  Sex: Female

DRUGS (2)
  1. CHANTIX [Suspect]
     Indication: SMOKING CESSATION THERAPY
     Dosage: 0.5MG AND 1MG
     Dates: start: 20070407, end: 20070501
  2. ATENOLOL [Concomitant]
     Indication: HYPERTENSION
     Dosage: UNK
     Dates: start: 20050101

REACTIONS (7)
  - ANXIETY [None]
  - MOOD SWINGS [None]
  - DEPRESSION [None]
  - MENTAL DISORDER [None]
  - HEADACHE [None]
  - PANIC ATTACK [None]
  - AGGRESSION [None]
